FAERS Safety Report 12395194 (Version 10)
Quarter: 2019Q3

REPORT INFORMATION
  Report Type: Report from Study
  Country: CR (occurrence: CR)
  Receive Date: 20160523
  Receipt Date: 20190924
  Transmission Date: 20191004
  Serious: Yes (Hospitalization, Other)
  Sender: FDA-Public Use
  Company Number: PHHY2016CR032866

PATIENT
  Age: 47 Year
  Sex: Female

DRUGS (5)
  1. VITAMIN D [Concomitant]
     Active Substance: VITAMIN D NOS
     Indication: PRODUCT USED FOR UNKNOWN INDICATION
     Dosage: 1 DF, QD
     Route: 048
  2. AMITRIPTYLINE [Concomitant]
     Active Substance: AMITRIPTYLINE
     Indication: PRODUCT USED FOR UNKNOWN INDICATION
     Dosage: UNK
     Route: 065
  3. VITAMIN B COMPLEX [Concomitant]
     Active Substance: CYANOCOBALAMIN\DEXPANTHENOL\NIACINAMIDE\PYRIDOXINE HYDROCHLORIDE\RIBOFLAVIN 5^-PHOSPHATE SODIUM\THIAMINE HYDROCHLORIDE\VITAMIN B COMPLEX
     Indication: PRODUCT USED FOR UNKNOWN INDICATION
     Dosage: 1 DF, QD
     Route: 048
  4. GILENYA [Suspect]
     Active Substance: FINGOLIMOD HYDROCHLORIDE
     Indication: MULTIPLE SCLEROSIS
     Dosage: 0.5 MG, QD
     Route: 048
     Dates: start: 20160308
  5. FLUOXETINE [Concomitant]
     Active Substance: FLUOXETINE HYDROCHLORIDE
     Indication: PRODUCT USED FOR UNKNOWN INDICATION
     Dosage: UNK
     Route: 065

REACTIONS (26)
  - Concomitant disease aggravated [Recovering/Resolving]
  - Eye disorder [Unknown]
  - Speech disorder [Not Recovered/Not Resolved]
  - Gait disturbance [Unknown]
  - Contusion [Unknown]
  - Fall [Unknown]
  - Malaise [Unknown]
  - Gastrooesophageal reflux disease [Unknown]
  - Drug ineffective [Unknown]
  - Bradycardia [Unknown]
  - Coordination abnormal [Unknown]
  - Palpitations [Recovered/Resolved]
  - Somnolence [Unknown]
  - Urinary incontinence [Recovered/Resolved]
  - Photopsia [Unknown]
  - Central nervous system lesion [Unknown]
  - Fatigue [Unknown]
  - Cystitis [Recovered/Resolved]
  - Eye pain [Unknown]
  - Memory impairment [Not Recovered/Not Resolved]
  - Movement disorder [Recovering/Resolving]
  - Insomnia [Unknown]
  - Headache [Unknown]
  - Tachycardia [Recovered/Resolved]
  - Temperature intolerance [Unknown]
  - Visual impairment [Not Recovered/Not Resolved]

NARRATIVE: CASE EVENT DATE: 201603
